FAERS Safety Report 9850356 (Version 1)
Quarter: 2014Q1

REPORT INFORMATION
  Report Type: Report from Study
  Country: US (occurrence: US)
  Receive Date: 20140128
  Receipt Date: 20140128
  Transmission Date: 20141002
  Serious: Yes (Other)
  Sender: FDA-Public Use
  Company Number: US-BAXTER-2014BAX003339

PATIENT
  Age: 62 Year
  Sex: Female
  Weight: 84.1 kg

DRUGS (11)
  1. GAMMAGARD LIQUID [Suspect]
     Indication: IMMUNODEFICIENCY
     Route: 058
     Dates: end: 201312
  2. METFORMIN [Concomitant]
     Indication: DIABETES MELLITUS
     Route: 048
  3. DILTIAZEM [Concomitant]
     Indication: PRODUCT USED FOR UNKNOWN INDICATION
     Route: 048
  4. PREMARIN [Concomitant]
     Indication: PRODUCT USED FOR UNKNOWN INDICATION
     Route: 048
  5. DESLORATADINE [Concomitant]
     Indication: HYPERSENSITIVITY
     Route: 048
  6. OMEPRAZOLE [Concomitant]
     Indication: HIATUS HERNIA
     Route: 048
  7. TRIAMTERENE/HCTZ [Concomitant]
     Indication: HYPERTENSION
     Dosage: 75/50 MILLIGRAMS
     Route: 048
  8. MYRBETRIQ [Concomitant]
     Indication: URINARY INCONTINENCE
     Route: 048
  9. FLOVENT [Concomitant]
     Indication: ASTHMA
     Dosage: 110
     Route: 055
  10. FLUOXETINE [Concomitant]
     Indication: PRODUCT USED FOR UNKNOWN INDICATION
     Dosage: 20
     Route: 048
  11. PROVENTIL [Concomitant]
     Indication: ASTHMA
     Dosage: AS NEEDED
     Route: 055

REACTIONS (2)
  - Bronchitis [Recovering/Resolving]
  - Sinusitis [Not Recovered/Not Resolved]
